FAERS Safety Report 14952155 (Version 1)
Quarter: 2018Q2

REPORT INFORMATION
  Report Type: Spontaneous
  Country: GB (occurrence: GB)
  Receive Date: 20180530
  Receipt Date: 20180530
  Transmission Date: 20180711
  Serious: Yes (Other)
  Sender: FDA-Public Use
  Company Number: GB-PFIZER INC-2018214235

PATIENT
  Age: 42 Year
  Sex: Female
  Weight: 99 kg

DRUGS (7)
  1. EVOREL [Concomitant]
     Dosage: 2 DF, WEEKLY
     Route: 062
     Dates: start: 20180129
  2. HYLO-FORTE [Concomitant]
     Active Substance: HYALURONATE SODIUM
     Dosage: 6 GTT, 1X/DAY (6 DROPS DAILY (TO BOTH EYES, PRESERVATIVE FREE).)
     Route: 047
     Dates: start: 20180129
  3. ATORVASTATIN CALCIUM. [Suspect]
     Active Substance: ATORVASTATIN CALCIUM
     Dosage: 20 MG, UNK
     Route: 048
  4. RAMIPRIL. [Concomitant]
     Active Substance: RAMIPRIL
     Dosage: 10 MG, 1X/DAY
     Dates: start: 20180129
  5. COCODAMOL [Concomitant]
     Active Substance: ACETAMINOPHEN\CODEINE PHOSPHATE
     Dosage: UNK (1-2 FOUR TIMES A DAY, 30MG/500MG)
     Dates: start: 20180129
  6. EZETIMIBE. [Concomitant]
     Active Substance: EZETIMIBE
     Dosage: 10 MG, 1X/DAY
     Dates: start: 20180412
  7. AMLODIPINE [Concomitant]
     Active Substance: AMLODIPINE BESYLATE
     Dosage: 5 MG, 1X/DAY
     Dates: start: 20180129

REACTIONS (1)
  - Nasal cyst [Recovered/Resolved]
